FAERS Safety Report 10529753 (Version 2)
Quarter: 2014Q4

REPORT INFORMATION
  Report Type: Spontaneous
  Country: IT (occurrence: IT)
  Receive Date: 20141021
  Receipt Date: 20141031
  Transmission Date: 20150528
  Serious: Yes (Disabling)
  Sender: FDA-Public Use
  Company Number: IT-RANBAXY-2014RR-86698

PATIENT
  Age: 56 Year
  Sex: Male

DRUGS (3)
  1. SIMVASTATIN. [Suspect]
     Active Substance: SIMVASTATIN
     Indication: HYPERCHOLESTEROLAEMIA
     Dosage: 20 MG, DAILY
     Route: 048
     Dates: start: 20121101, end: 20130214
  2. NEBIVOLOL [Concomitant]
     Active Substance: NEBIVOLOL
     Indication: HYPERTENSION
     Dosage: 2.5 MG, UNK
     Route: 048
  3. ZELBORAF [Suspect]
     Active Substance: VEMURAFENIB
     Indication: METASTATIC MALIGNANT MELANOMA
     Dosage: 960 MG CYCLIC
     Route: 048
     Dates: start: 20120515, end: 20120529

REACTIONS (6)
  - Gastritis [Unknown]
  - Lymphadenopathy mediastinal [Unknown]
  - Metastatic malignant melanoma [Unknown]
  - Hypercholesterolaemia [Unknown]
  - Myalgia [Unknown]
  - Disease progression [Unknown]

NARRATIVE: CASE EVENT DATE: 20131130
